FAERS Safety Report 4692287-5 (Version None)
Quarter: 2005Q2

REPORT INFORMATION
  Report Type: 
  Country: None (occurrence: None)
  Receive Date: 20050616
  Receipt Date: 20050602
  Transmission Date: 20051028
  Serious: Yes (Life-Threatening, Hospitalization)
  Sender: FDA-Public Use
  Company Number: 2005084412

PATIENT
  Sex: Male

DRUGS (2)
  1. RELPAX [Suspect]
     Indication: MIGRAINE
     Dosage: 80 MEQ (40 MG, 2 IN 1 D), ORAL
  2. PROZAC [Suspect]
     Indication: ILL-DEFINED DISORDER
     Dosage: ORAL
     Route: 048

REACTIONS (2)
  - COMA [None]
  - LOSS OF CONSCIOUSNESS [None]
